FAERS Safety Report 11370151 (Version 1)
Quarter: 2015Q3

REPORT INFORMATION
  Report Type: Spontaneous
  Country: FR (occurrence: FR)
  Receive Date: 20150812
  Receipt Date: 20150812
  Transmission Date: 20151125
  Serious: Yes (Hospitalization)
  Sender: FDA-Public Use
  Company Number: FR-AUROBINDO-AUR-APL-2015-06889

PATIENT
  Age: 90 Year
  Sex: Male

DRUGS (4)
  1. CALCIPARINE [Suspect]
     Active Substance: HEPARIN CALCIUM
     Indication: PRODUCT USED FOR UNKNOWN INDICATION
     Dosage: 0.4 ML, UNK
     Route: 058
     Dates: start: 201506
  2. LEVOFLOXACINE MYLAN                /01278901/ [Suspect]
     Active Substance: LEVOFLOXACIN
     Indication: PRODUCT USED FOR UNKNOWN INDICATION
     Dosage: 1000 MG, UNK
     Route: 048
     Dates: start: 20150630, end: 20150708
  3. LEDERFOLINE [Suspect]
     Active Substance: LEUCOVORIN CALCIUM
     Indication: PRODUCT USED FOR UNKNOWN INDICATION
     Dosage: 5 MG, UNK
     Route: 048
     Dates: start: 201506, end: 20150708
  4. GABAPENTIN ARROW [Suspect]
     Active Substance: GABAPENTIN
     Indication: PRODUCT USED FOR UNKNOWN INDICATION
     Dosage: 200 MG, UNK
     Route: 048
     Dates: start: 201506, end: 20150708

REACTIONS (10)
  - Bundle branch block right [Unknown]
  - Anaemia [Recovered/Resolved]
  - Rales [Unknown]
  - Crepitations [Unknown]
  - Atrioventricular block first degree [Unknown]
  - Sinus rhythm [Unknown]
  - Hyperkalaemia [Recovered/Resolved]
  - Blood creatinine increased [Unknown]
  - Acute kidney injury [Recovered/Resolved]
  - Thrombocytopenia [Not Recovered/Not Resolved]

NARRATIVE: CASE EVENT DATE: 20150702
